FAERS Safety Report 21967975 (Version 2)
Quarter: 2023Q1

REPORT INFORMATION
  Report Type: Spontaneous
  Country: US (occurrence: US)
  Receive Date: 20230208
  Receipt Date: 20230303
  Transmission Date: 20230418
  Serious: Yes (Life-Threatening)
  Sender: FDA-Public Use
  Company Number: US-Vifor (International) Inc.-VIT-2023-00868

PATIENT
  Age: 64 Year
  Sex: Male
  Weight: 62.6 kg

DRUGS (3)
  1. MIRCERA [Suspect]
     Active Substance: METHOXY POLYETHYLENE GLYCOL-EPOETIN BETA
     Indication: Anaemia
     Route: 042
     Dates: start: 20221223, end: 20221223
  2. HEPARIN [Concomitant]
     Active Substance: HEPARIN SODIUM
     Dosage: DOSE: 1600 UNITS PER DIALYSIS (ROUTINE MEDICATION THAT PATIENT RECEIVED AT EVERY DIALYSIS TREATMENT)
  3. CALCITRIOL [Concomitant]
     Active Substance: CALCITRIOL
     Dosage: ROUTINE MEDICATION THAT PATIENT RECEIVED AT EVERY DIALYSIS TREATMENT

REACTIONS (6)
  - Dizziness [Recovered/Resolved]
  - Vision blurred [Recovered/Resolved]
  - Seizure like phenomena [Recovered/Resolved]
  - Musculoskeletal stiffness [Recovered/Resolved]
  - Chest pain [Recovered/Resolved]
  - Chills [Recovered/Resolved]

NARRATIVE: CASE EVENT DATE: 20221223
